FAERS Safety Report 5026246-X (Version None)
Quarter: 2006Q2

REPORT INFORMATION
  Report Type: 
  Country: None (occurrence: None)
  Receive Date: 20060614
  Receipt Date: 20060608
  Transmission Date: 20061013
  Serious: Yes (Other)
  Sender: FDA-Public Use
  Company Number: PT-ABBOTT-06P-130-0335548-00

PATIENT
  Sex: Female

DRUGS (4)
  1. KLACID OD [Suspect]
     Indication: DRUG USE FOR UNKNOWN INDICATION
     Route: 048
  2. CYANOCOBALAMIN [Concomitant]
     Indication: DRUG USE FOR UNKNOWN INDICATION
  3. CENTRUM [Concomitant]
     Indication: DRUG USE FOR UNKNOWN INDICATION
  4. MAGNESIUM CHLORIDE ANHYDROUS [Concomitant]
     Indication: DRUG USE FOR UNKNOWN INDICATION

REACTIONS (6)
  - HAEMATOMA [None]
  - HEPATIC ENZYME ABNORMAL [None]
  - HEPATIC PAIN [None]
  - LABORATORY TEST ABNORMAL [None]
  - PLATELET COUNT DECREASED [None]
  - WHITE BLOOD CELL COUNT ABNORMAL [None]
